FAERS Safety Report 6134822-6 (Version None)
Quarter: 2009Q1

REPORT INFORMATION
  Report Type: 
  Country: None (occurrence: None)
  Receive Date: 20090327
  Receipt Date: 20090323
  Transmission Date: 20090719
  Serious: Yes (Other)
  Sender: FDA-Public Use
  Company Number: PHHY2008AT17310

PATIENT
  Sex: Female
  Weight: 83 kg

DRUGS (2)
  1. EXELON [Suspect]
     Indication: DEMENTIA ALZHEIMER'S TYPE
     Dosage: 4.5 MG/24 HR
     Route: 062
     Dates: start: 20080124, end: 20080128
  2. EBIXA [Suspect]
     Dosage: UNK
     Dates: start: 20061201

REACTIONS (2)
  - AGGRESSION [None]
  - HALLUCINATION [None]
